FAERS Safety Report 9441759 (Version 1)
Quarter: 2013Q3

REPORT INFORMATION
  Report Type: Spontaneous
  Country: US (occurrence: US)
  Receive Date: 20130806
  Receipt Date: 20130806
  Transmission Date: 20140515
  Serious: Yes (Hospitalization, Other)
  Sender: FDA-Public Use
  Company Number: US-SUN PHARMACEUTICAL INDUSTRIES LTD-2013SUN01514

PATIENT
  Age: 72 Year
  Sex: Female

DRUGS (12)
  1. OXALIPLATIN [Suspect]
     Indication: PANCREATIC CARCINOMA
     Dosage: 80 %, DOSE REDUCTION
     Route: 065
  2. OXALIPLATIN [Suspect]
     Dosage: INCREASED TO 90% FOR CYCLE 4
     Route: 065
  3. OXALIPLATIN [Suspect]
     Dosage: DECREASED TO 80%
     Route: 065
  4. IRINOTECAN HYDROCHLORIDE [Suspect]
     Indication: PANCREATIC CARCINOMA
     Dosage: 80% DOSE REDUCTION
     Route: 065
  5. IRINOTECAN HYDROCHLORIDE [Suspect]
     Dosage: INCREASED TO 90% FOR CYCLE 4
     Route: 065
  6. IRINOTECAN HYDROCHLORIDE [Suspect]
     Dosage: DECREASED TO 80%
     Route: 065
  7. FLUOROURACIL [Suspect]
     Indication: PANCREATIC CARCINOMA
     Dosage: 80% DOSE REDUCTION
     Route: 065
  8. FLUOROURACIL [Suspect]
     Dosage: INCREASED TO 90% FOR CYCLE 4
     Route: 065
  9. FLUOROURACIL [Suspect]
     Dosage: DECREASED TO 80%
     Route: 065
  10. FOLINIC ACID [Suspect]
     Indication: PANCREATIC CARCINOMA
     Dosage: 80% DOSE REDUCTION
     Route: 065
  11. FOLINIC ACID [Suspect]
     Dosage: INCREASED TO 90% FOR CYCLE 4
     Route: 065
  12. FOLINIC ACID [Suspect]
     Dosage: DECREASED TO 80%
     Route: 065

REACTIONS (8)
  - Myelodysplastic syndrome [Recovering/Resolving]
  - Herpes zoster [Unknown]
  - Peripheral sensory neuropathy [Recovering/Resolving]
  - Thrombocytopenia [Recovering/Resolving]
  - Anaemia [Recovering/Resolving]
  - Diarrhoea [Recovering/Resolving]
  - Vomiting [Recovering/Resolving]
  - Nausea [Recovering/Resolving]
